FAERS Safety Report 7539962-2 (Version None)
Quarter: 2011Q2

REPORT INFORMATION
  Report Type: 
  Country: None (occurrence: None)
  Receive Date: 20110603
  Receipt Date: 20110524
  Transmission Date: 20111010
  Serious: Yes (Other)
  Sender: FDA-Public Use
  Company Number: US-005433

PATIENT
  Sex: Female

DRUGS (2)
  1. PROVERA [Concomitant]
  2. TRANEXAMIC ACID [Suspect]
     Indication: MENORRHAGIA
     Dates: start: 20110501

REACTIONS (1)
  - PULMONARY EMBOLISM [None]
